FAERS Safety Report 5858488-5 (Version None)
Quarter: 2008Q3

REPORT INFORMATION
  Report Type: 
  Country: None (occurrence: None)
  Receive Date: 20080826
  Receipt Date: 20080814
  Transmission Date: 20090109
  Serious: Yes (Other)
  Sender: FDA-Public Use
  Company Number: ES-PFIZER INC-2008035429

PATIENT
  Age: 47 Year
  Sex: Male

DRUGS (3)
  1. BESITRAN [Suspect]
     Indication: DYSURIA
     Route: 048
     Dates: start: 20060123, end: 20060222
  2. EMCONCOR [Suspect]
     Indication: HYPERTENSION
     Route: 048
  3. HIDROSALURETIL [Concomitant]
     Dosage: DAILY DOSE:20MEQ
     Route: 048

REACTIONS (5)
  - ABDOMINAL PAIN [None]
  - ASTHENIA [None]
  - DRUG TOXICITY [None]
  - HEPATOTOXICITY [None]
  - JAUNDICE [None]
